FAERS Safety Report 26105112 (Version 2)
Quarter: 2025Q4

REPORT INFORMATION
  Report Type: Report from Study
  Country: US (occurrence: US)
  Receive Date: 20251130
  Receipt Date: 20251203
  Transmission Date: 20260118
  Serious: Yes (Hospitalization, Other)
  Sender: ABBVIE
  Company Number: US-ABBVIE-6567618

PATIENT
  Age: 61 Year
  Sex: Male
  Weight: 61.234 kg

DRUGS (2)
  1. CREON [Suspect]
     Active Substance: PANCRELIPASE AMYLASE\PANCRELIPASE LIPASE\PANCRELIPASE PROTEASE
     Indication: Pancreatic disorder
     Dosage: TIME INTERVAL: 0.33333333 DAYS: FORM STRENGTH: 36000 UNIT
     Route: 048
     Dates: start: 2016
  2. CREON [Suspect]
     Active Substance: PANCRELIPASE AMYLASE\PANCRELIPASE LIPASE\PANCRELIPASE PROTEASE
     Indication: Pancreatic disorder
     Dosage: FORM STRENGTH: 36000 UNIT
     Route: 048
     Dates: start: 2025

REACTIONS (3)
  - Diabetes mellitus [Unknown]
  - Vomiting [Recovered/Resolved]
  - Pancreaticoduodenectomy [Unknown]

NARRATIVE: CASE EVENT DATE: 20160301
